FAERS Safety Report 6343567-9 (Version None)
Quarter: 2009Q3

REPORT INFORMATION
  Report Type: 
  Country: None (occurrence: None)
  Receive Date: 20090904
  Receipt Date: 20090904
  Transmission Date: 20100115
  Serious: Yes (Other)
  Sender: FDA-Public Use
  Company Number: None

PATIENT
  Sex: Male
  Weight: 59.8748 kg

DRUGS (2)
  1. LEUCOVORIN CALCIUM [Suspect]
     Indication: NEOPLASM MALIGNANT
     Dosage: INTRAVENOUS (APRIL 17TH)
  2. FLUOROURACIL [Suspect]
     Dosage: 3RD SESSION

REACTIONS (1)
  - UNEVALUABLE EVENT [None]
